FAERS Safety Report 14606072 (Version 1)
Quarter: 2018Q1

REPORT INFORMATION
  Report Type: Spontaneous
  Country: GB (occurrence: GB)
  Receive Date: 20180307
  Receipt Date: 20180307
  Transmission Date: 20180509
  Serious: Yes (Life-Threatening, Disabling)
  Sender: FDA-Public Use
  Company Number: GB-CIPLA LTD.-2018GB08427

PATIENT

DRUGS (2)
  1. OLANZAPINE. [Suspect]
     Active Substance: OLANZAPINE
     Indication: PSYCHOTIC DISORDER
     Dosage: 20 MG, UNK, EVERY SINGLE ONE, AND OTHER MEDS SE
     Route: 048
     Dates: start: 20120608, end: 20160514
  2. RISPERIDONE. [Suspect]
     Active Substance: RISPERIDONE
     Indication: PSYCHOTIC DISORDER
     Dosage: 6 MG, UNK, EVERY SINGLE ONE, AND OTHER MEDS AL
     Route: 051
     Dates: start: 20130714, end: 20160701

REACTIONS (11)
  - Suicide attempt [Unknown]
  - Dissociative identity disorder [Unknown]
  - Abnormal weight gain [Unknown]
  - Derealisation [Unknown]
  - Indifference [Unknown]
  - Diabetes mellitus [Unknown]
  - Thinking abnormal [Unknown]
  - Memory impairment [Unknown]
  - Suicidal ideation [Unknown]
  - Hallucination, auditory [Unknown]
  - Feeling abnormal [Unknown]

NARRATIVE: CASE EVENT DATE: 20130417
